FAERS Safety Report 10283747 (Version 3)
Quarter: 2014Q3

REPORT INFORMATION
  Report Type: Spontaneous
  Country: DE (occurrence: DE)
  Receive Date: 20140708
  Receipt Date: 20140919
  Transmission Date: 20150326
  Serious: Yes (Life-Threatening, Hospitalization, Other)
  Sender: FDA-Public Use
  Company Number: DE-PFIZER INC-2014181410

PATIENT
  Age: 62 Year
  Sex: Female
  Weight: 72 kg

DRUGS (11)
  1. MOVICOL [Concomitant]
     Active Substance: POLYETHYLENE GLYCOL 3350\POTASSIUM CHLORIDE\SODIUM BICARBONATE\SODIUM CHLORIDE
     Dosage: AS NEEDED, 1-1-0
  2. SPIRONOLACTONE. [Concomitant]
     Active Substance: SPIRONOLACTONE
     Dosage: 25 UNK,1-0-0
  3. XARELTO [Concomitant]
     Active Substance: RIVAROXABAN
     Dosage: 15 MG, 1-0-0
  4. METOPROLOL [Concomitant]
     Active Substance: METOPROLOL
     Dosage: 47.5 MG, 1-0-1
  5. NOVAMIN [Concomitant]
     Active Substance: PROCHLORPERAZINE MALEATE
     Dosage: 1 G, AS NEEDED, 1-1-1
  6. L-THYROXIN [Concomitant]
     Active Substance: LEVOTHYROXINE SODIUM
     Dosage: 100 UG, 1-0-0
  7. SUTENT [Suspect]
     Active Substance: SUNITINIB MALATE
     Indication: METASTATIC RENAL CELL CARCINOMA
     Dosage: 50 MG, DAILY
     Route: 048
     Dates: start: 20110302, end: 20140518
  8. FALITHROM [Suspect]
     Active Substance: PHENPROCOUMON
     Dosage: UNK
     Dates: start: 20140425, end: 20140517
  9. TORASEMIDE [Concomitant]
     Active Substance: TORSEMIDE
     Dosage: 20 UNK, 1-1-0
  10. PANTOPRAZOLE [Concomitant]
     Active Substance: PANTOPRAZOLE SODIUM
     Dosage: 40 UNK, 0-0-1
  11. PANTOZOL [Concomitant]
     Active Substance: PANTOPRAZOLE SODIUM
     Dosage: 40 MG, 0-0-1

REACTIONS (16)
  - Haemorrhage [Unknown]
  - Thrombocytopenia [Recovered/Resolved]
  - Haemolytic uraemic syndrome [Recovered/Resolved]
  - Leukopenia [Recovered/Resolved]
  - Gallbladder perforation [Unknown]
  - Cystitis [Recovered/Resolved]
  - Cholecystitis acute [Unknown]
  - Abscess [Unknown]
  - Escherichia infection [Unknown]
  - Acute hepatic failure [Recovered/Resolved]
  - Cholecystitis acute [Recovered/Resolved]
  - Sepsis [Unknown]
  - Duodenitis [Unknown]
  - Pulmonary embolism [Recovered/Resolved]
  - Gallbladder empyema [Unknown]
  - Anaemia [Unknown]

NARRATIVE: CASE EVENT DATE: 20140425
